FAERS Safety Report 17735934 (Version 9)
Quarter: 2022Q2

REPORT INFORMATION
  Report Type: Spontaneous
  Country: US (occurrence: US)
  Receive Date: 20200501
  Receipt Date: 20220526
  Transmission Date: 20220721
  Serious: Yes (Death, Life-Threatening, Other)
  Sender: FDA-Public Use
  Company Number: US-NOVARTISPH-NVSC2020US117328

PATIENT
  Age: 1 Year
  Sex: Female
  Weight: 10 kg

DRUGS (3)
  1. KYMRIAH [Suspect]
     Active Substance: TISAGENLECLEUCEL
     Indication: Acute lymphocytic leukaemia refractory
     Dosage: 41 ML, ONCE/SINGLE (1.2E6/KG)
     Route: 042
     Dates: start: 20200414, end: 20200414
  2. CYCLOPHOSPHAMIDE [Concomitant]
     Active Substance: CYCLOPHOSPHAMIDE
     Indication: Chemotherapy
     Dosage: UNK
     Route: 065
  3. FLUDARABINE [Concomitant]
     Active Substance: FLUDARABINE PHOSPHATE
     Indication: Chemotherapy
     Dosage: UNK
     Route: 065

REACTIONS (14)
  - White blood cell count increased [Fatal]
  - Blast cells present [Fatal]
  - Acute lymphocytic leukaemia refractory [Fatal]
  - Malignant neoplasm progression [Fatal]
  - Bacteraemia [Recovered/Resolved with Sequelae]
  - Coagulopathy [Not Recovered/Not Resolved]
  - Cytokine release syndrome [Recovered/Resolved with Sequelae]
  - Tachypnoea [Unknown]
  - Pyrexia [Not Recovered/Not Resolved]
  - Hypoxia [Recovering/Resolving]
  - Tachycardia [Unknown]
  - Immune effector cell-associated neurotoxicity syndrome [Unknown]
  - Treatment failure [Not Recovered/Not Resolved]
  - General physical health deterioration [Unknown]

NARRATIVE: CASE EVENT DATE: 20200414
